FAERS Safety Report 12398026 (Version 1)
Quarter: 2016Q2

REPORT INFORMATION
  Report Type: Spontaneous
  Country: US (occurrence: None)
  Receive Date: 20160523
  Receipt Date: 20160523
  Transmission Date: 20160815
  Serious: Yes (Hospitalization)
  Sender: FDA-Public Use
  Company Number: None

PATIENT
  Age: 53 Year
  Sex: Male

DRUGS (7)
  1. OMEPRAZOLE. [Concomitant]
     Active Substance: OMEPRAZOLE
  2. SULFAMETHOXAZOLE/TRIMETHOPRIM [Concomitant]
     Active Substance: SULFAMETHOXAZOLE\TRIMETHOPRIM
  3. IPILIMUMAB [Suspect]
     Active Substance: IPILIMUMAB
     Indication: MALIGNANT MELANOMA
     Route: 042
     Dates: start: 20160315, end: 20160315
  4. NIVOLUMAB [Suspect]
     Active Substance: NIVOLUMAB
     Route: 042
  5. BUPROPION. [Concomitant]
     Active Substance: BUPROPION
  6. INSULIN GLARGINE [Concomitant]
     Active Substance: INSULIN GLARGINE
  7. LORAZAPAM [Concomitant]
     Active Substance: LORAZEPAM

REACTIONS (1)
  - Colitis [None]

NARRATIVE: CASE EVENT DATE: 20160404
